FAERS Safety Report 23540867 (Version 1)
Quarter: 2024Q1

REPORT INFORMATION
  Report Type: Spontaneous
  Country: US (occurrence: US)
  Receive Date: 20240219
  Receipt Date: 20240219
  Transmission Date: 20240410
  Serious: No
  Sender: FDA-Public Use
  Company Number: US-Stemline Therapeutics, Inc.-2024ST000342

PATIENT
  Age: 65 Year
  Sex: Female

DRUGS (2)
  1. ORSERDU [Suspect]
     Active Substance: ELACESTRANT
     Indication: Product used for unknown indication
     Route: 048
     Dates: start: 20230320, end: 20231228
  2. TRUQAP [Concomitant]
     Active Substance: CAPIVASERTIB
     Indication: Breast cancer female
     Dosage: 4 DAYS ON AND 3 DAYS OFF
     Route: 065
     Dates: start: 20240104

REACTIONS (1)
  - Diarrhoea [Unknown]
